FAERS Safety Report 11882304 (Version 1)
Quarter: 2015Q4

REPORT INFORMATION
  Report Type: Spontaneous
  Country: US (occurrence: None)
  Receive Date: 20151230
  Receipt Date: 20151230
  Transmission Date: 20160305
  Serious: Yes (Hospitalization)
  Sender: FDA-Public Use
  Company Number: None

PATIENT
  Age: 14 Year
  Sex: Male
  Weight: 116 kg

DRUGS (3)
  1. ETOPOSIDE (VP-16) [Suspect]
     Active Substance: ETOPOSIDE
     Dates: end: 20151207
  2. CYCLOPHOSPHAMIDE. [Suspect]
     Active Substance: CYCLOPHOSPHAMIDE
     Dates: end: 20151207
  3. ONCASPAR [Suspect]
     Active Substance: PEGASPARGASE
     Dates: end: 20151222

REACTIONS (10)
  - Dyspnoea [None]
  - Cough [None]
  - Nausea [None]
  - Rash [None]
  - Peripheral coldness [None]
  - Hyperhidrosis [None]
  - Hypotension [None]
  - Anxiety [None]
  - Urticaria [None]
  - Oxygen saturation decreased [None]

NARRATIVE: CASE EVENT DATE: 20151222
